FAERS Safety Report 10684536 (Version 3)
Quarter: 2015Q1

REPORT INFORMATION
  Report Type: Spontaneous
  Country: US (occurrence: US)
  Receive Date: 20141231
  Receipt Date: 20150305
  Transmission Date: 20150720
  Serious: No
  Sender: FDA-Public Use
  Company Number: US-009507513-1412USA013896

PATIENT
  Sex: Female
  Weight: 128.35 kg

DRUGS (2)
  1. NEXPLANON [Suspect]
     Active Substance: ETONOGESTREL
     Dosage: 1 ROD, (UNSPECIFIED) ARM
     Route: 059
     Dates: start: 20140606, end: 20150220
  2. NEXPLANON [Suspect]
     Active Substance: ETONOGESTREL
     Dosage: UNK
     Route: 059
     Dates: start: 20150220

REACTIONS (3)
  - Device kink [Recovered/Resolved]
  - Anxiety [Unknown]
  - Implant site pain [Unknown]

NARRATIVE: CASE EVENT DATE: 2014
